FAERS Safety Report 18392823 (Version 1)
Quarter: 2020Q4

REPORT INFORMATION
  Report Type: Report from Study
  Country: BR (occurrence: BR)
  Receive Date: 20201016
  Receipt Date: 20201016
  Transmission Date: 20210114
  Serious: Yes (Other)
  Sender: FDA-Public Use
  Company Number: BR-EMD SERONO-E2B_90029153

PATIENT
  Age: 44 Year
  Sex: Female
  Weight: 90 kg

DRUGS (7)
  1. PREDNISOLONE. [Concomitant]
     Active Substance: PREDNISOLONE
     Indication: MULTIPLE SCLEROSIS RELAPSE
  2. REBIF [Suspect]
     Active Substance: INTERFERON BETA-1A
     Indication: MULTIPLE SCLEROSIS
     Route: 058
     Dates: start: 20170310
  3. AMANTADINE. [Suspect]
     Active Substance: AMANTADINE HYDROCHLORIDE
     Indication: FATIGUE
  4. BIO-MANGUINHOS BETAINTERFERONA 1A 44 MCG [Suspect]
     Active Substance: INTERFERON BETA-1A
     Indication: MULTIPLE SCLEROSIS
     Dosage: THERAPY START DATE: 05 AUG 2019.
     Route: 058
  5. POTASSIUM [Concomitant]
     Active Substance: POTASSIUM
     Indication: MULTIPLE SCLEROSIS RELAPSE
  6. CORTISONE [Concomitant]
     Active Substance: CORTISONE
     Indication: MULTIPLE SCLEROSIS RELAPSE
  7. CARBAMAZEPINE. [Suspect]
     Active Substance: CARBAMAZEPINE
     Indication: ANXIETY

REACTIONS (23)
  - Swelling [Not Recovered/Not Resolved]
  - Binge eating [Not Recovered/Not Resolved]
  - Injection site haematoma [Unknown]
  - Injection site discolouration [Recovering/Resolving]
  - Drug hypersensitivity [Recovering/Resolving]
  - Weight increased [Not Recovered/Not Resolved]
  - Pyrexia [Unknown]
  - Decreased immune responsiveness [Not Recovered/Not Resolved]
  - Injection site erythema [Not Recovered/Not Resolved]
  - Injection site pain [Not Recovered/Not Resolved]
  - Phlebitis [Unknown]
  - Nervous system disorder [Not Recovered/Not Resolved]
  - Malaise [Not Recovered/Not Resolved]
  - Haemorrhoids [Not Recovered/Not Resolved]
  - Varicose vein [Not Recovered/Not Resolved]
  - Thrombosis [Not Recovered/Not Resolved]
  - Feeling abnormal [Not Recovered/Not Resolved]
  - Injection site bruising [Not Recovered/Not Resolved]
  - Injection site pruritus [Not Recovered/Not Resolved]
  - Pain [Not Recovered/Not Resolved]
  - Injection site injury [Not Recovered/Not Resolved]
  - Fatigue [Not Recovered/Not Resolved]
  - Dizziness [Not Recovered/Not Resolved]

NARRATIVE: CASE EVENT DATE: 2017
